FAERS Safety Report 4685973-4 (Version None)
Quarter: 2005Q2

REPORT INFORMATION
  Report Type: 
  Country: None (occurrence: None)
  Receive Date: 20050609
  Receipt Date: 20050523
  Transmission Date: 20051028
  Serious: Yes (Hospitalization)
  Sender: FDA-Public Use
  Company Number: 200514676GDDC

PATIENT
  Age: 68 Year
  Sex: Female
  Weight: 56 kg

DRUGS (9)
  1. TAXOTERE [Suspect]
     Indication: ENDOMETRIAL CANCER
     Route: 042
     Dates: end: 20050428
  2. CARBOPLATIN [Suspect]
     Indication: ENDOMETRIAL CANCER
     Dosage: DOSE: AUC 6
     Route: 042
     Dates: start: 20050428
  3. TYLENOL (CAPLET) [Concomitant]
     Route: 048
  4. MAGNESIUM [Concomitant]
     Route: 048
  5. COUMADIN [Concomitant]
     Route: 048
  6. DEXAMETHASONE [Concomitant]
     Route: 048
  7. SENNA [Concomitant]
  8. DETROL [Concomitant]
     Route: 048
  9. FLEXERIL [Concomitant]
     Route: 048

REACTIONS (8)
  - BLOOD CULTURE POSITIVE [None]
  - CHOLELITHIASIS [None]
  - HAEMOGLOBIN DECREASED [None]
  - HEPATOBILIARY DISEASE [None]
  - KLEBSIELLA INFECTION [None]
  - LIVER FUNCTION TEST ABNORMAL [None]
  - PYREXIA [None]
  - UROSEPSIS [None]
